FAERS Safety Report 17300624 (Version 1)
Quarter: 2020Q1

REPORT INFORMATION
  Report Type: Spontaneous
  Country: US (occurrence: US)
  Receive Date: 20200122
  Receipt Date: 20200122
  Transmission Date: 20200409
  Serious: No
  Sender: FDA-Public Use
  Company Number: US-ALLERGAN-1946852US

PATIENT
  Sex: Female

DRUGS (2)
  1. FRESHKOTE EYE DROPS [Concomitant]
     Indication: DRY EYE
     Dosage: UNK, QD
  2. RESTASIS [Suspect]
     Active Substance: CYCLOSPORINE
     Indication: DRY EYE
     Dosage: 4 GTT, BID
     Dates: start: 2018

REACTIONS (1)
  - Intentional product use issue [Unknown]
